FAERS Safety Report 10900399 (Version 1)
Quarter: 2015Q1

REPORT INFORMATION
  Report Type: Spontaneous
  Country: US (occurrence: US)
  Receive Date: 20150310
  Receipt Date: 20150310
  Transmission Date: 20150721
  Serious: No
  Sender: FDA-Public Use
  Company Number: US-BIOGENIDEC-2015BI026220

PATIENT
  Age: 53 Year
  Sex: Female

DRUGS (23)
  1. TECFIDERA [Suspect]
     Active Substance: DIMETHYL FUMARATE
     Indication: PRODUCT USED FOR UNKNOWN INDICATION
     Route: 048
  2. POLYETHYLENE GLYCOL [Concomitant]
     Active Substance: POLYETHYLENE GLYCOLS
  3. ZOLPIDEM [Concomitant]
     Active Substance: ZOLPIDEM\ZOLPIDEM TARTRATE
  4. CALCIUM +D [Concomitant]
     Active Substance: CALCIUM\VITAMIN D
  5. CYCLOBENZAPRINE [Concomitant]
     Active Substance: CYCLOBENZAPRINE
  6. IBANDRONATE [Concomitant]
     Active Substance: IBANDRONATE SODIUM
  7. LANSOPRAZOLE. [Concomitant]
     Active Substance: LANSOPRAZOLE
  8. LINZESS [Concomitant]
     Active Substance: LINACLOTIDE
  9. TOPAMAX [Concomitant]
     Active Substance: TOPIRAMATE
  10. VITAMIN D3 [Concomitant]
     Active Substance: CHOLECALCIFEROL
  11. ZONISAMIDE. [Concomitant]
     Active Substance: ZONISAMIDE
  12. OMEGA - 3 FISH OIL [Concomitant]
  13. SERTRALINE [Concomitant]
     Active Substance: SERTRALINE HYDROCHLORIDE
  14. ASPIRIN. [Concomitant]
     Active Substance: ASPIRIN
  15. HYDROCODONE/ACETAMINOPHEN [Concomitant]
     Active Substance: ACETAMINOPHEN\HYDROCODONE
  16. LORAZEPAM. [Concomitant]
     Active Substance: LORAZEPAM
  17. MAXALT [Concomitant]
     Active Substance: RIZATRIPTAN BENZOATE
  18. PREMARIN [Concomitant]
     Active Substance: ESTROGENS, CONJUGATED
  19. AMPYRA [Concomitant]
     Active Substance: DALFAMPRIDINE
     Indication: MULTIPLE SCLEROSIS
     Route: 048
     Dates: start: 201101
  20. ATORVASTATIN [Concomitant]
     Active Substance: ATORVASTATIN
  21. CENTRUM [Concomitant]
     Active Substance: VITAMINS
  22. VITAMIN B12 [Concomitant]
     Active Substance: CYANOCOBALAMIN
  23. ONDANSETRON [Concomitant]
     Active Substance: ONDANSETRON

REACTIONS (5)
  - Fall [Unknown]
  - Tibia fracture [Unknown]
  - Pruritus [Not Recovered/Not Resolved]
  - Feeling hot [Not Recovered/Not Resolved]
  - Erythema [Not Recovered/Not Resolved]

NARRATIVE: CASE EVENT DATE: 20150118
